FAERS Safety Report 16922621 (Version 1)
Quarter: 2019Q4

REPORT INFORMATION
  Report Type: Spontaneous
  Country: BR (occurrence: BR)
  Receive Date: 20191016
  Receipt Date: 20191016
  Transmission Date: 20200122
  Serious: Yes (Other)
  Sender: FDA-Public Use
  Company Number: BR-US-PROVELL PHARMACEUTICALS LLC-9121653

PATIENT
  Age: 60 Year
  Sex: Female

DRUGS (6)
  1. GLIFAGE [Suspect]
     Active Substance: METFORMIN HYDROCHLORIDE
     Dosage: GLIFAGE XR 500 MG (NEW FORMAT)
     Route: 048
     Dates: start: 20191007
  2. GLIFAGE [Suspect]
     Active Substance: METFORMIN HYDROCHLORIDE
     Dosage: GLIFAGE XR 500 MG (NEW FORMAT)
     Route: 048
     Dates: start: 20191001, end: 20191001
  3. GLIFAGE [Suspect]
     Active Substance: METFORMIN HYDROCHLORIDE
     Indication: PRODUCT USED FOR UNKNOWN INDICATION
     Dosage: GLIFAGE XR 500 MG OLD FORMAT
     Route: 048
  4. GLIFAGE [Suspect]
     Active Substance: METFORMIN HYDROCHLORIDE
     Dosage: GLIFAGE XR 500 MG OLD FORMAT
     Route: 048
     Dates: start: 20191001, end: 20191006
  5. EUTHYROX [Suspect]
     Active Substance: LEVOTHYROXINE SODIUM
     Indication: PRODUCT USED FOR UNKNOWN INDICATION
     Dosage: EUTHYROX 112 MCG ON EMPTY STOMACH, ALONG WITH LOSARTAN
  6. LOSARTAN. [Suspect]
     Active Substance: LOSARTAN
     Indication: PRODUCT USED FOR UNKNOWN INDICATION

REACTIONS (5)
  - Palpitations [Unknown]
  - Blood glucose increased [Unknown]
  - Intentional product use issue [Unknown]
  - Hyperhidrosis [Unknown]
  - Drug ineffective [Unknown]

NARRATIVE: CASE EVENT DATE: 201910
